FAERS Safety Report 5090950-8 (Version None)
Quarter: 2006Q3

REPORT INFORMATION
  Report Type: 
  Country: None (occurrence: None)
  Receive Date: 20060823
  Receipt Date: 20060816
  Transmission Date: 20061208
  Serious: Yes (Life-Threatening, Hospitalization)
  Sender: FDA-Public Use
  Company Number: US-2006-023757

PATIENT
  Age: 76 Year
  Sex: Male

DRUGS (17)
  1. CAMPATH [Suspect]
     Indication: CHRONIC LYMPHOCYTIC LEUKAEMIA
     Dosage: D1-5 EVERY 28 DAYS, SUBCUTANEOUS
     Route: 058
     Dates: start: 20060313, end: 20060728
  2. FLUDARA [Suspect]
     Indication: CHRONIC LYMPHOCYTIC LEUKAEMIA
     Dosage: D1-5 EVERY 28 DAYS, INTRAVENOUS
     Route: 042
     Dates: start: 20060313, end: 20060728
  3. EPOETIN ALFA (EPOETIN ALFA) [Concomitant]
  4. NORMAL SALINE [Concomitant]
  5. IMIPENEM (IMIPENEM) [Concomitant]
  6. AZTREONAM (AZTREONAM) [Concomitant]
  7. RED BLOOD CELLS [Concomitant]
  8. MULTIVITAMINS (RETINOL, PANTHENOL) [Concomitant]
  9. ALLOPURINOL [Concomitant]
  10. DOCUSATE CALCIUM (DOCUSATE CALCIUM) [Concomitant]
  11. FERROUS SULFATE TAB [Concomitant]
  12. FINASTERIDE [Concomitant]
  13. TERAZOSIN (TERAZOSIN) [Concomitant]
  14. FOLIC ACID [Concomitant]
  15. SULFAMETHOXAZOLE + TRIMETHOPRIM [Concomitant]
  16. FAMCICLOVIR (FAMCICLOVIR) [Concomitant]
  17. OXYCODONE/APAP (OXYCODONE) [Concomitant]

REACTIONS (17)
  - ACUTE RESPIRATORY DISTRESS SYNDROME [None]
  - ANAEMIA [None]
  - BENIGN PROSTATIC HYPERPLASIA [None]
  - CATHETER RELATED INFECTION [None]
  - ESCHERICHIA BACTERAEMIA [None]
  - HYPERKALAEMIA [None]
  - HYPONATRAEMIA [None]
  - HYPOXIA [None]
  - LETHARGY [None]
  - METABOLIC ACIDOSIS [None]
  - ORAL INTAKE REDUCED [None]
  - PNEUMONIA ESCHERICHIA [None]
  - RENAL FAILURE [None]
  - RENAL FAILURE CHRONIC [None]
  - SEPTIC SHOCK [None]
  - URINARY TRACT INFECTION [None]
  - URINE OUTPUT DECREASED [None]
